FAERS Safety Report 8075501-8 (Version None)
Quarter: 2012Q1

REPORT INFORMATION
  Report Type: 
  Country: None (occurrence: None)
  Receive Date: 20120123
  Receipt Date: 20120109
  Transmission Date: 20120608
  Serious: Yes (Death, Other)
  Sender: FDA-Public Use
  Company Number: 2012P1002144

PATIENT
  Age: 46 Year
  Sex: Male

DRUGS (2)
  1. CEFOTAXIME [Concomitant]
  2. CEFAZOLIN [Suspect]
     Indication: INFECTIOUS PERITONITIS
     Dosage: 1 G; QD;IP
     Route: 033

REACTIONS (6)
  - RENAL ATROPHY [None]
  - SUDDEN DEATH [None]
  - RENAL CYST HAEMORRHAGE [None]
  - RENAL HAEMORRHAGE [None]
  - RENAL CELL CARCINOMA [None]
  - INTERNATIONAL NORMALISED RATIO INCREASED [None]
